FAERS Safety Report 8565485-8 (Version None)
Quarter: 2012Q3

REPORT INFORMATION
  Report Type: 
  Country: None (occurrence: None)
  Receive Date: 20120803
  Receipt Date: 20120726
  Transmission Date: 20120928
  Serious: Yes (Death, Hospitalization, Other)
  Sender: FDA-Public Use
  Company Number: CN-GENZYME-CERZ-1002489

PATIENT
  Sex: Male
  Weight: 21 kg

DRUGS (6)
  1. CEREZYME [Suspect]
     Indication: GAUCHER'S DISEASE
     Dosage: 400 U, ONCE
     Route: 042
     Dates: start: 20120201, end: 20120201
  2. CEREZYME [Suspect]
     Dosage: 15 U/KG, Q3W
     Route: 042
  3. CEREZYME [Suspect]
     Dosage: 28 U/KG, Q2W
     Route: 042
     Dates: start: 20111201, end: 20120201
  4. CEREZYME [Suspect]
     Dosage: 29 U/KG, Q 3-4W
     Route: 042
     Dates: start: 20120120
  5. CEREZYME [Suspect]
     Dosage: 30 U/KG, Q2W
     Route: 042
     Dates: start: 20101001, end: 20111201
  6. CEREZYME [Suspect]
     Dosage: 60 U/KG, Q2W
     Route: 042
     Dates: start: 20080701, end: 20101001

REACTIONS (4)
  - HEAD INJURY [None]
  - FALL [None]
  - CEREBELLAR HAEMORRHAGE [None]
  - GAUCHER'S DISEASE [None]
